FAERS Safety Report 8057460-7 (Version None)
Quarter: 2012Q1

REPORT INFORMATION
  Report Type: 
  Country: None (occurrence: None)
  Receive Date: 20120119
  Receipt Date: 20120116
  Transmission Date: 20120608
  Serious: Yes (Life-Threatening, Hospitalization, Other)
  Sender: FDA-Public Use
  Company Number: BR-ROCHE-666709

PATIENT
  Sex: Female
  Weight: 60 kg

DRUGS (26)
  1. PREDNISONE TAB [Suspect]
     Indication: RHEUMATOID ARTHRITIS
     Route: 065
  2. ARAVA [Concomitant]
  3. NEXIUM [Concomitant]
  4. ALDACTONE [Concomitant]
  5. DIGOXIN [Concomitant]
  6. MABTHERA [Suspect]
     Indication: RHEUMATOID ARTHRITIS
     Dosage: DOSE: 100 MG/10 ML; FREQUENCY: 1000 MG/KG; OTHER INDICATION: VASCULITIS, FORM: INFUSION
     Route: 042
     Dates: start: 20090601, end: 20090625
  7. MABTHERA [Suspect]
     Route: 042
  8. METHOTREXATE [Concomitant]
  9. GALVUS [Concomitant]
     Dosage: DRUG REPORTED AS GALVUS MET
  10. NORVASC [Concomitant]
  11. MABTHERA [Suspect]
     Dosage: DOSE: 100 MG/10 ML
     Route: 042
     Dates: start: 20090701, end: 20100204
  12. ORENCIA [Concomitant]
     Indication: RHEUMATOID ARTHRITIS
  13. SYNTHROID [Concomitant]
  14. FERROUS SULFATE TAB [Concomitant]
  15. INSULIN [Concomitant]
     Dosage: UNSPECIFIED/IN THE MORNING
  16. CYMBALTA [Concomitant]
  17. ZETIA [Concomitant]
     Dosage: FREQUENCY: ONE CAPSULE
  18. HUMALOG [Concomitant]
     Dosage: FREQUENCY: 30 UI IN THE MORNING AND 20 UI AT NIGHT
  19. ASPIRIN [Concomitant]
  20. LIPITOR [Concomitant]
  21. PLAVIX [Concomitant]
     Indication: CARDIAC DISORDER
     Dosage: DOSE: 10 MG/75 MG
  22. METICORTEN [Concomitant]
  23. VITAMIN B COMPLEX CAP [Concomitant]
  24. MABTHERA [Suspect]
     Route: 042
     Dates: start: 20110107, end: 20110101
  25. ENALAPRIL MALEATE [Concomitant]
  26. METOPROLOL SUCCINATE [Concomitant]

REACTIONS (21)
  - HEART DISEASE CONGENITAL [None]
  - IMMUNODEFICIENCY [None]
  - ANAEMIA [None]
  - PAIN [None]
  - CARDIAC ANEURYSM [None]
  - ARTHROPATHY [None]
  - BACK PAIN [None]
  - SYNCOPE [None]
  - BONE DISORDER [None]
  - GAIT DISTURBANCE [None]
  - MYOCARDIAL INFARCTION [None]
  - PNEUMOTHORAX [None]
  - BLOOD CHOLESTEROL ABNORMAL [None]
  - VIITH NERVE PARALYSIS [None]
  - WEIGHT DECREASED [None]
  - PAIN IN EXTREMITY [None]
  - INFUSION RELATED REACTION [None]
  - HYPERSENSITIVITY [None]
  - ARTHRALGIA [None]
  - HAEMORRHAGE [None]
  - HERPES ZOSTER [None]
